FAERS Safety Report 15357972 (Version 1)
Quarter: 2018Q3

REPORT INFORMATION
  Report Type: Spontaneous
  Country: US (occurrence: US)
  Receive Date: 20180906
  Receipt Date: 20180906
  Transmission Date: 20181010
  Serious: Yes (Other)
  Sender: FDA-Public Use
  Company Number: US-MYLANLABS-2018M1064244

PATIENT
  Sex: Male
  Weight: 184 kg

DRUGS (2)
  1. NIFEDIPINE. [Suspect]
     Active Substance: NIFEDIPINE
     Indication: BLOOD PRESSURE INCREASED
     Dosage: 60 MG, UNK
     Route: 048
     Dates: start: 20170622
  2. NIFEDIPINE. [Suspect]
     Active Substance: NIFEDIPINE
     Dosage: 60 MG, UNK
     Route: 048
     Dates: start: 20170627, end: 20170627

REACTIONS (1)
  - Blindness [Not Recovered/Not Resolved]

NARRATIVE: CASE EVENT DATE: 2016
